FAERS Safety Report 4335095-7 (Version None)
Quarter: 2004Q2

REPORT INFORMATION
  Report Type: 
  Country: None (occurrence: None)
  Receive Date: 20040408
  Receipt Date: 20040329
  Transmission Date: 20050107
  Serious: Yes (Hospitalization)
  Sender: FDA-Public Use
  Company Number: FR-BRISTOL-MYERS SQUIBB COMPANY-12543989

PATIENT
  Age: 27 Year
  Sex: Female

DRUGS (3)
  1. MUCOMYST [Suspect]
     Dates: start: 19971202, end: 19971211
  2. CEFAPEROS [Suspect]
     Route: 048
     Dates: start: 19971202, end: 19971211
  3. SUDAFED S.A. [Suspect]
     Route: 048
     Dates: start: 19971202, end: 19971211

REACTIONS (2)
  - FACE OEDEMA [None]
  - URTICARIA [None]
